FAERS Safety Report 11359439 (Version 1)
Quarter: 2015Q3

REPORT INFORMATION
  Report Type: Spontaneous
  Country: KR (occurrence: KR)
  Receive Date: 20150807
  Receipt Date: 20150807
  Transmission Date: 20151125
  Serious: Yes (Other)
  Sender: FDA-Public Use
  Company Number: KR-SA-2015SA116391

PATIENT
  Age: 12 Year
  Sex: Male

DRUGS (3)
  1. THYMOGLOBULINE [Suspect]
     Active Substance: LAPINE T-LYMPHOCYTE IMMUNE GLOBULIN
     Indication: APLASTIC ANAEMIA
     Route: 042
  2. METHYLPREDNISOLONE. [Concomitant]
     Active Substance: METHYLPREDNISOLONE
     Indication: IMMUNOSUPPRESSION
  3. CYCLOSPORINE. [Concomitant]
     Active Substance: CYCLOSPORINE
     Indication: IMMUNOSUPPRESSION

REACTIONS (7)
  - Palpitations [Recovered/Resolved]
  - Tremor [Recovered/Resolved]
  - Goitre [Recovered/Resolved]
  - Weight decreased [Recovered/Resolved]
  - Basedow^s disease [Recovered/Resolved]
  - Hyperhidrosis [Recovered/Resolved]
  - Hyperthyroidism [Recovered/Resolved]
